FAERS Safety Report 9017265 (Version 1)
Quarter: 2013Q1

REPORT INFORMATION
  Report Type: Spontaneous
  Country: US (occurrence: US)
  Receive Date: 20130117
  Receipt Date: 20130117
  Transmission Date: 20140127
  Serious: Yes (Other)
  Sender: FDA-Public Use
  Company Number: US-BAYER-2013-005660

PATIENT
  Age: 52 Year
  Sex: Female

DRUGS (1)
  1. YASMIN [Suspect]
     Indication: CONTRACEPTION
     Dosage: 3MG/0.03MG
     Dates: start: 2003, end: 201201

REACTIONS (3)
  - Postural orthostatic tachycardia syndrome [None]
  - Malaise [None]
  - Blood pressure decreased [None]
